FAERS Safety Report 11634635 (Version 1)
Quarter: 2015Q4

REPORT INFORMATION
  Report Type: Spontaneous
  Country: HR (occurrence: HR)
  Receive Date: 20151015
  Receipt Date: 20151015
  Transmission Date: 20160304
  Serious: Yes (Life-Threatening)
  Sender: FDA-Public Use
  Company Number: PHHY2015HR124855

PATIENT
  Age: 76 Year
  Sex: Male
  Weight: 130 kg

DRUGS (8)
  1. ANDOL [Concomitant]
     Active Substance: ASPIRIN
     Indication: PRODUCT USED FOR UNKNOWN INDICATION
     Dosage: 100 MG, QD (100MG; 0,1,0)
     Route: 048
  2. OMNIC [Concomitant]
     Active Substance: TAMSULOSIN HYDROCHLORIDE
     Indication: BENIGN PROSTATIC HYPERPLASIA
     Dosage: 0.4 MG, QD (0.4MG; 1,0,0)
     Route: 048
  3. ARES//RABEPRAZOLE SODIUM [Suspect]
     Active Substance: RABEPRAZOLE SODIUM
     Indication: PRODUCT USED FOR UNKNOWN INDICATION
     Dosage: 20 MG, QD (20MG; 1,0,0)
     Route: 048
  4. VESICARE [Concomitant]
     Active Substance: SOLIFENACIN SUCCINATE
     Indication: PRODUCT USED FOR UNKNOWN INDICATION
     Dosage: 5 MG, QD (1,0,0)
     Route: 048
  5. CO PERINEVA [Concomitant]
     Indication: HYPERTENSION
     Dosage: 1 DF, QD (4/1.25MG) (4 MG OF PERINDOPRIL ERBUMINE + 1.25 MG OF INDAPAMIDE)
     Route: 048
  6. SORTIS [Suspect]
     Active Substance: ATORVASTATIN
     Indication: HYPERLIPIDAEMIA
     Dosage: 10 MG, QD (10MG; 0,0,1)
     Route: 048
  7. VOLTAREN [Suspect]
     Active Substance: DICLOFENAC SODIUM
     Indication: PRODUCT USED FOR UNKNOWN INDICATION
     Dosage: 100 MG, QD (1,0,0)
     Route: 048
  8. PROSCAR [Concomitant]
     Active Substance: FINASTERIDE
     Indication: BENIGN PROSTATIC HYPERPLASIA
     Dosage: 5 MG, QD (5MG; 0,0,1)
     Route: 048

REACTIONS (3)
  - Acute kidney injury [Not Recovered/Not Resolved]
  - Rhabdomyolysis [Not Recovered/Not Resolved]
  - Fall [None]

NARRATIVE: CASE EVENT DATE: 20150929
